FAERS Safety Report 9618728 (Version 1)
Quarter: 2013Q4

REPORT INFORMATION
  Report Type: Spontaneous
  Country: GB (occurrence: GB)
  Receive Date: 20131014
  Receipt Date: 20131014
  Transmission Date: 20140711
  Serious: Yes (Other)
  Sender: FDA-Public Use
  Company Number: GB-ELI_LILLY_AND_COMPANY-GB201310000658

PATIENT
  Age: 35 Year
  Sex: Male
  Weight: 106 kg

DRUGS (9)
  1. FLUOXETINE HYDROCHLORIDE [Suspect]
     Indication: DEPRESSED MOOD
     Dosage: 20 MG, UNKNOWN
     Route: 048
     Dates: end: 20130326
  2. CLOZARIL [Interacting]
     Dosage: 1 DF, UNKNOWN
     Route: 048
     Dates: start: 20130308
  3. CLOZARIL [Interacting]
     Dosage: 150 MG, UNKNOWN
     Route: 048
     Dates: start: 20130322
  4. HYOSCINE [Concomitant]
     Dosage: 300 UG, UNKNOWN
     Route: 065
  5. MAALOX                             /00082501/ [Concomitant]
     Dosage: 1 DF, UNKNOWN
     Route: 065
  6. QUETIAPINE [Concomitant]
     Indication: SCHIZOPHRENIA
     Dosage: 800 MG, UNKNOWN
     Route: 048
  7. SIMVASTATIN [Concomitant]
     Indication: BLOOD CHOLESTEROL INCREASED
     Dosage: 10 MG, UNKNOWN
     Route: 048
  8. SODIUM VALPROATE [Concomitant]
     Indication: MOOD ALTERED
     Dosage: 1 G, UNKNOWN
     Route: 048
  9. ZOPICLONE [Concomitant]
     Dosage: 1 DF, UNKNOWN
     Route: 065

REACTIONS (4)
  - Salivary hypersecretion [Unknown]
  - Antipsychotic drug level increased [Unknown]
  - Antipsychotic drug level decreased [Unknown]
  - Drug interaction [Unknown]
